FAERS Safety Report 4691417-9 (Version None)
Quarter: 2005Q2

REPORT INFORMATION
  Report Type: 
  Country: None (occurrence: None)
  Receive Date: 20050615
  Receipt Date: 20050603
  Transmission Date: 20051028
  Serious: Yes (Hospitalization, Other)
  Sender: FDA-Public Use
  Company Number: KII-2005-0016880

PATIENT
  Age: 19 Year
  Sex: Male

DRUGS (3)
  1. OXYCONTIN [Suspect]
     Dosage: ORAL
     Route: 048
  2. METHADONE (METHADONE) [Suspect]
     Dosage: ORAL
     Route: 048
  3. HEROIN (DIAMORPHINE) [Suspect]
     Dosage: ORAL
     Route: 048

REACTIONS (13)
  - AGITATION [None]
  - BLOOD CREATINE PHOSPHOKINASE INCREASED [None]
  - BLOOD PH DECREASED [None]
  - BODY TEMPERATURE INCREASED [None]
  - COMA [None]
  - CONFUSIONAL STATE [None]
  - CONVULSION [None]
  - FEELING JITTERY [None]
  - OVERDOSE [None]
  - POLYSUBSTANCE ABUSE [None]
  - SOMNOLENCE [None]
  - TACHYCARDIA [None]
  - WHITE BLOOD CELL COUNT INCREASED [None]
